FAERS Safety Report 11179087 (Version 1)
Quarter: 2015Q2

REPORT INFORMATION
  Report Type: Spontaneous
  Country: US (occurrence: None)
  Receive Date: 20150514
  Receipt Date: 20150514
  Transmission Date: 20150821
  Serious: Yes (Death)
  Sender: FDA-Public Use
  Company Number: US-145655

PATIENT
  Sex: Female
  Weight: 70 kg

DRUGS (1)
  1. BOTULISM ANTITOXIN [Suspect]
     Active Substance: BOTULISM ANTITOXIN
     Dosage: INTRAVENOUS (NOT OTHERWISE SPECIFIFD)
     Route: 042
     Dates: start: 20141207, end: 20141207

REACTIONS (9)
  - Dysarthria [None]
  - Areflexia [None]
  - Vomiting [None]
  - Fatigue [None]
  - Nausea [None]
  - Respiratory failure [None]
  - Diarrhoea [None]
  - Muscular weakness [None]
  - Paralysis [None]
